FAERS Safety Report 4991507-7 (Version None)
Quarter: 2006Q2

REPORT INFORMATION
  Report Type: 
  Country: None (occurrence: None)
  Receive Date: 20060502
  Receipt Date: 20060417
  Transmission Date: 20061013
  Serious: Yes (Death, Hospitalization)
  Sender: FDA-Public Use
  Company Number: PHO-2005-027

PATIENT
  Age: 42 Year
  Sex: Female

DRUGS (2)
  1. PHOTOFRIN [Suspect]
     Indication: METASTASES TO PLEURA
     Dosage: 2 MG/KG, IV
     Route: 042
     Dates: start: 19990603
  2. PHOTOFRIN [Suspect]
     Indication: NON-SMALL CELL LUNG CANCER
     Dosage: 2 MG/KG, IV
     Route: 042
     Dates: start: 19990603

REACTIONS (20)
  - ACIDOSIS [None]
  - ACTIVATED PARTIAL THROMBOPLASTIN TIME PROLONGED [None]
  - ADRENAL INSUFFICIENCY [None]
  - BLOOD ALKALINE PHOSPHATASE INCREASED [None]
  - COAGULOPATHY [None]
  - GASTROINTESTINAL HAEMORRHAGE [None]
  - HYPERGLYCAEMIA [None]
  - HYPOTENSION [None]
  - HYPOTHERMIA [None]
  - NUTRITIONAL CONDITION ABNORMAL [None]
  - PNEUMONIA [None]
  - POST PROCEDURAL COMPLICATION [None]
  - POSTOPERATIVE INFECTION [None]
  - POSTOPERATIVE WOUND COMPLICATION [None]
  - PROTHROMBIN TIME RATIO INCREASED [None]
  - RENAL FAILURE [None]
  - RESPIRATORY FAILURE [None]
  - SEPSIS [None]
  - THROMBOCYTOPENIA [None]
  - TRANSAMINASES INCREASED [None]
